FAERS Safety Report 6212923-1 (Version None)
Quarter: 2009Q2

REPORT INFORMATION
  Report Type: 
  Country: None (occurrence: None)
  Receive Date: 20090601
  Receipt Date: 20090519
  Transmission Date: 20091009
  Serious: Yes (Hospitalization)
  Sender: FDA-Public Use
  Company Number: 20063050

PATIENT
  Sex: Female

DRUGS (1)
  1. LIORESAL [Suspect]
     Dosage: 500 MCG, DAILY, INTRATHECAL
     Route: 037

REACTIONS (9)
  - DEVICE FAILURE [None]
  - DRUG DELIVERY SYSTEM MALFUNCTION [None]
  - IMPAIRED WORK ABILITY [None]
  - MUSCLE SPASTICITY [None]
  - PRURITUS [None]
  - PULMONARY EMBOLISM [None]
  - PYREXIA [None]
  - SKIN BURNING SENSATION [None]
  - WITHDRAWAL SYNDROME [None]
